FAERS Safety Report 7396477-2 (Version None)
Quarter: 2011Q2

REPORT INFORMATION
  Report Type: 
  Country: None (occurrence: None)
  Receive Date: 20110406
  Receipt Date: 20101006
  Transmission Date: 20111010
  Serious: Yes (Hospitalization, Other)
  Sender: FDA-Public Use
  Company Number: US-BAYER-201024969NA

PATIENT
  Sex: Female
  Weight: 68.027 kg

DRUGS (2)
  1. YAZ [Suspect]
     Indication: CONTRACEPTION
     Route: 048
     Dates: start: 20071101, end: 20080415
  2. YASMIN [Suspect]
     Dosage: UNK
     Route: 048
     Dates: start: 20071124

REACTIONS (10)
  - NAUSEA [None]
  - GALLBLADDER DISORDER [None]
  - CHOLELITHIASIS [None]
  - MEDICAL DIET [None]
  - VOMITING [None]
  - PAIN [None]
  - CHEST PAIN [None]
  - PROCEDURAL PAIN [None]
  - GASTROOESOPHAGEAL REFLUX DISEASE [None]
  - ANXIETY [None]
